FAERS Safety Report 23762670 (Version 1)
Quarter: 2024Q2

REPORT INFORMATION
  Report Type: Spontaneous
  Country: US (occurrence: US)
  Receive Date: 20240419
  Receipt Date: 20240419
  Transmission Date: 20240716
  Serious: Yes (Other)
  Sender: FDA-Public Use
  Company Number: US-PHATHOM PHARMACEUTICALS INC.-2024PHT00095

PATIENT
  Sex: Female

DRUGS (1)
  1. VOQUEZNA TRIPLE PAK [Suspect]
     Active Substance: AMOXICILLIN\CLARITHROMYCIN\VONOPRAZAN FUMARATE
     Indication: Helicobacter infection
     Dosage: UNK, ^PER PRESCRIPTION INSTRUCTIONS^

REACTIONS (1)
  - Psychotic disorder [Recovered/Resolved]
